FAERS Safety Report 23892732 (Version 1)
Quarter: 2024Q2

REPORT INFORMATION
  Report Type: Spontaneous
  Country: US (occurrence: US)
  Receive Date: 20240524
  Receipt Date: 20240524
  Transmission Date: 20240717
  Serious: No
  Sender: FDA-Public Use
  Company Number: US-AMGEN-USASP2024101943

PATIENT

DRUGS (7)
  1. MVASI [Suspect]
     Active Substance: BEVACIZUMAB-AWWB
     Indication: Product used for unknown indication
     Dosage: UNK (400 MILLIGRAM) (1 VIALS)
     Route: 065
  2. MVASI [Suspect]
     Active Substance: BEVACIZUMAB-AWWB
     Dosage: UNK (400 MILLIGRAM) (1 VIALS)
     Route: 065
  3. MVASI [Suspect]
     Active Substance: BEVACIZUMAB-AWWB
     Dosage: UNK (100 MILLIGRAM) (3 VIALS)
     Route: 065
  4. MVASI [Suspect]
     Active Substance: BEVACIZUMAB-AWWB
     Dosage: UNK (100 MILLIGRAM) (2 VIALS)
     Route: 065
  5. KYPROLIS [Suspect]
     Active Substance: CARFILZOMIB
     Indication: Product used for unknown indication
     Dosage: UNK (10 MILLIGRAM) (1 VIAL)
     Route: 065
  6. KYPROLIS [Suspect]
     Active Substance: CARFILZOMIB
     Dosage: UNK (10 MILLIGRAM) (2 VIAL)
     Route: 065
  7. KYPROLIS [Suspect]
     Active Substance: CARFILZOMIB
     Dosage: UNK (30 MILLIGRAM) (1 VIAL)
     Route: 065

REACTIONS (2)
  - Circumstance or information capable of leading to medication error [Unknown]
  - Product storage error [Unknown]

NARRATIVE: CASE EVENT DATE: 20240516
